FAERS Safety Report 6030030-8 (Version None)
Quarter: 2009Q1

REPORT INFORMATION
  Report Type: 
  Country: None (occurrence: None)
  Receive Date: 20090105
  Receipt Date: 20090105
  Transmission Date: 20090719
  Serious: Yes (Death)
  Sender: FDA-Public Use
  Company Number: None

PATIENT
  Age: 61 Year
  Sex: Male
  Weight: 117.9352 kg

DRUGS (1)
  1. BYETTA [Suspect]
     Indication: DIABETES MELLITUS
     Dates: start: 20080501, end: 20081101

REACTIONS (6)
  - ABDOMINAL DISTENSION [None]
  - DIALYSIS [None]
  - GALLBLADDER DISORDER [None]
  - PANCREATITIS [None]
  - PANCREATITIS HAEMORRHAGIC [None]
  - RENAL FAILURE ACUTE [None]
